FAERS Safety Report 18555156 (Version 1)
Quarter: 2020Q4

REPORT INFORMATION
  Report Type: Spontaneous
  Country: CN (occurrence: CN)
  Receive Date: 20201127
  Receipt Date: 20201127
  Transmission Date: 20210114
  Serious: Yes (Death)
  Sender: FDA-Public Use
  Company Number: CN-ASTRAZENECA-2020SF57708

PATIENT
  Age: 32 Year
  Sex: Male
  Weight: 51 kg

DRUGS (1)
  1. IMFINZI [Suspect]
     Active Substance: DURVALUMAB
     Indication: NON-SMALL CELL LUNG CANCER STAGE III
     Dosage: 500MG / CYCLE 500ML / 10ML.
     Route: 042
     Dates: start: 20200614, end: 20200707

REACTIONS (1)
  - Death [Fatal]

NARRATIVE: CASE EVENT DATE: 202008
